FAERS Safety Report 6259531-4 (Version None)
Quarter: 2009Q3

REPORT INFORMATION
  Report Type: 
  Country: None (occurrence: None)
  Receive Date: 20090706
  Receipt Date: 20090706
  Transmission Date: 20100115
  Serious: Yes (Life-Threatening, Hospitalization, Disabling)
  Sender: FDA-Public Use
  Company Number: None

PATIENT
  Age: 53 Year
  Sex: Female
  Weight: 75 kg

DRUGS (1)
  1. HUMIRA [Suspect]
     Indication: CROHN'S DISEASE
     Dosage: 120MG FIRST DOSE SC
     Route: 058
     Dates: start: 20090630

REACTIONS (3)
  - CHEST PAIN [None]
  - GRAND MAL CONVULSION [None]
  - MUSCLE SPASMS [None]
